FAERS Safety Report 20890384 (Version 1)
Quarter: 2022Q2

REPORT INFORMATION
  Report Type: Spontaneous
  Country: US (occurrence: US)
  Receive Date: 20220530
  Receipt Date: 20220530
  Transmission Date: 20220720
  Serious: Yes (Hospitalization, Other)
  Sender: FDA-Public Use
  Company Number: US-ALLERGAN-2217100US

PATIENT
  Sex: Male

DRUGS (1)
  1. DALVANCE [Suspect]
     Active Substance: DALBAVANCIN
     Indication: Osteomyelitis
     Dosage: UNK, SINGLE
     Dates: start: 20220509, end: 20220509

REACTIONS (2)
  - Acute kidney injury [Unknown]
  - Off label use [Unknown]
